FAERS Safety Report 9416593 (Version 3)
Quarter: 2013Q3

REPORT INFORMATION
  Report Type: Spontaneous
  Country: JP (occurrence: None)
  Receive Date: 20130719
  Receipt Date: 20130830
  Transmission Date: 20140515
  Serious: Yes (Other)
  Sender: FDA-Public Use
  Company Number: JP-012342

PATIENT
  Age: 70 Year
  Sex: Male
  Weight: 70 kg

DRUGS (10)
  1. DEGARELIX [Suspect]
     Indication: PROSTATE CANCER
     Route: 058
     Dates: start: 20130510, end: 20130510
  2. PREDNISOLONE [Concomitant]
  3. LANSOPRAZOLE [Concomitant]
  4. GASMOTIN [Concomitant]
  5. PENTASA [Concomitant]
  6. FERROMIA   /00023520/ [Concomitant]
  7. OLMETEC [Concomitant]
  8. BUP-4 [Concomitant]
  9. MAGMITT [Concomitant]
  10. CASODEX [Concomitant]

REACTIONS (7)
  - Urticaria [None]
  - Rash generalised [None]
  - Intentional drug misuse [None]
  - Erythema [None]
  - Hypersensitivity [None]
  - Injection site urticaria [None]
  - Viral upper respiratory tract infection [None]
